FAERS Safety Report 5651905-5 (Version None)
Quarter: 2008Q1

REPORT INFORMATION
  Report Type: 
  Country: None (occurrence: None)
  Receive Date: 20080305
  Receipt Date: 20080229
  Transmission Date: 20080703
  Serious: Yes (Life-Threatening, Hospitalization)
  Sender: FDA-Public Use
  Company Number: FR-MERCK-0803FRA00001

PATIENT
  Age: 60 Year
  Sex: Male
  Weight: 96 kg

DRUGS (17)
  1. VYTORIN [Suspect]
     Route: 048
     Dates: start: 20070601, end: 20070702
  2. CYCLOSPORINE [Suspect]
     Indication: RENAL TRANSPLANT
     Route: 048
  3. ALLOPURINOL [Concomitant]
     Route: 048
  4. EPOETIN BETA [Concomitant]
     Route: 051
  5. NICORANDIL [Concomitant]
     Route: 048
  6. FERROUS SULFATE [Concomitant]
     Route: 048
  7. LOSARTAN POTASSIUM [Concomitant]
     Route: 048
  8. CLOPIDOGREL BISULFATE [Concomitant]
     Indication: PROPHYLAXIS
     Route: 048
  9. SODIUM POLYSTYRENE SULFONATE [Concomitant]
     Route: 048
  10. AMLODIPINE BESYLATE [Concomitant]
     Route: 048
  11. ASPIRIN LYSINE [Concomitant]
     Indication: PROPHYLAXIS
     Route: 048
  12. NICORANDIL [Concomitant]
     Route: 048
  13. CALCITRIOL [Concomitant]
     Route: 048
  14. SODIUM BICARBONATE [Concomitant]
     Route: 048
  15. FUROSEMIDE [Concomitant]
     Route: 048
  16. MYCOPHENOLATE MOFETIL [Concomitant]
     Indication: RENAL TRANSPLANT
     Route: 048
  17. CALCIUM CARBONATE [Concomitant]
     Route: 048

REACTIONS (3)
  - DRUG INTERACTION [None]
  - HYPERKALAEMIA [None]
  - RHABDOMYOLYSIS [None]
